FAERS Safety Report 6209186-X (Version None)
Quarter: 2009Q2

REPORT INFORMATION
  Report Type: 
  Country: None (occurrence: None)
  Receive Date: 20090529
  Receipt Date: 20090522
  Transmission Date: 20091009
  Serious: Yes (Other)
  Sender: FDA-Public Use
  Company Number: GB-SP-2009-02308

PATIENT
  Age: 64 Year
  Sex: Female

DRUGS (1)
  1. IMMUCYST [Suspect]
     Indication: DRUG USE FOR UNKNOWN INDICATION
     Dosage: NOT REPORTED
     Route: 043

REACTIONS (5)
  - BLADDER IRRITATION [None]
  - CONJUNCTIVITIS [None]
  - EYE PAIN [None]
  - FOREIGN BODY SENSATION IN EYES [None]
  - PAIN [None]
